FAERS Safety Report 7734029-2 (Version None)
Quarter: 2011Q3

REPORT INFORMATION
  Report Type: 
  Country: None (occurrence: None)
  Receive Date: 20110907
  Receipt Date: 20110831
  Transmission Date: 20111222
  Serious: Yes (Life-Threatening, Hospitalization)
  Sender: FDA-Public Use
  Company Number: JP-ROCHE-706536

PATIENT
  Sex: Female
  Weight: 56 kg

DRUGS (2)
  1. PYDOXAL [Concomitant]
     Route: 048
     Dates: start: 20100126, end: 20100504
  2. XELODA [Suspect]
     Indication: COLON CANCER METASTATIC
     Dosage: THREE COURSES.
     Route: 048
     Dates: start: 20100126, end: 20100504

REACTIONS (5)
  - HISTIOCYTOSIS HAEMATOPHAGIC [None]
  - BRONCHITIS [None]
  - PYREXIA [None]
  - URINARY TRACT INFECTION [None]
  - FAECES DISCOLOURED [None]
